FAERS Safety Report 6375537-9 (Version None)
Quarter: 2009Q3

REPORT INFORMATION
  Report Type: 
  Country: None (occurrence: None)
  Receive Date: 20090917
  Receipt Date: 20090917
  Transmission Date: 20100115
  Serious: No
  Sender: FDA-Public Use
  Company Number: None

PATIENT
  Age: 15 Year
  Sex: Female

DRUGS (2)
  1. VANCOMYCIN [Suspect]
     Dosage: OPHTHALMIC
     Route: 047
  2. GENTAMICIN [Suspect]
     Dosage: OPHTHALMIC

REACTIONS (1)
  - NO ADVERSE EVENT [None]
